FAERS Safety Report 5518907-0 (Version None)
Quarter: 2007Q4

REPORT INFORMATION
  Report Type: 
  Country: None (occurrence: None)
  Receive Date: 20071114
  Receipt Date: 20071102
  Transmission Date: 20080405
  Serious: No
  Sender: FDA-Public Use
  Company Number: 20074065

PATIENT
  Age: 58 Year
  Sex: Female

DRUGS (1)
  1. LIORESAL [Suspect]
     Indication: MUSCLE SPASTICITY
     Dosage: UNK MCG DAILY INTRATHECAL
     Route: 037

REACTIONS (8)
  - CONDITION AGGRAVATED [None]
  - DEVICE BREAKAGE [None]
  - DRUG INEFFECTIVE [None]
  - ILL-DEFINED DISORDER [None]
  - INJURY [None]
  - MUSCLE SPASTICITY [None]
  - PYREXIA [None]
  - UNDERDOSE [None]
